FAERS Safety Report 16106262 (Version 1)
Quarter: 2019Q1

REPORT INFORMATION
  Report Type: Spontaneous
  Country: GB (occurrence: GB)
  Receive Date: 20190322
  Receipt Date: 20190322
  Transmission Date: 20190418
  Serious: Yes (Hospitalization)
  Sender: FDA-Public Use
  Company Number: GB-PFIZER INC-2019117139

PATIENT
  Age: 38 Year
  Sex: Male
  Weight: 75 kg

DRUGS (1)
  1. CHAMPIX [Suspect]
     Active Substance: VARENICLINE TARTRATE
     Dosage: UNK
     Route: 048
     Dates: start: 20161015, end: 20170116

REACTIONS (3)
  - Suicidal behaviour [Recovered/Resolved with Sequelae]
  - Anxiety [Not Recovered/Not Resolved]
  - Tourette^s disorder [Not Recovered/Not Resolved]
